FAERS Safety Report 7411159-6 (Version None)
Quarter: 2011Q2

REPORT INFORMATION
  Report Type: 
  Country: None (occurrence: None)
  Receive Date: 20110413
  Receipt Date: 20100309
  Transmission Date: 20111010
  Serious: No
  Sender: FDA-Public Use
  Company Number: US-BRISTOL-MYERS SQUIBB COMPANY-15009921

PATIENT

DRUGS (1)
  1. ERBITUX [Suspect]
     Dosage: 100MG/50ML VIAL
     Route: 042
     Dates: start: 20100308, end: 20100308

REACTIONS (2)
  - NO ADVERSE EVENT [None]
  - DRUG ADMINISTRATION ERROR [None]
